FAERS Safety Report 24641621 (Version 1)
Quarter: 2024Q4

REPORT INFORMATION
  Report Type: Spontaneous
  Country: CA (occurrence: CA)
  Receive Date: 20241120
  Receipt Date: 20241120
  Transmission Date: 20250115
  Serious: Yes (Death)
  Sender: CSL BEHRING
  Company Number: CA-BEH-2024185342

PATIENT
  Age: 51 Year
  Sex: Male

DRUGS (1)
  1. ALBUMIN HUMAN [Suspect]
     Active Substance: ALBUMIN HUMAN
     Indication: Product used for unknown indication
     Dosage: 100 ML
     Route: 042

REACTIONS (3)
  - Transfusion-related circulatory overload [Fatal]
  - Blood pressure increased [Fatal]
  - Dyspnoea [Fatal]
